FAERS Safety Report 5595936-2 (Version None)
Quarter: 2008Q1

REPORT INFORMATION
  Report Type: 
  Country: None (occurrence: None)
  Receive Date: 20080118
  Receipt Date: 20080108
  Transmission Date: 20080703
  Serious: Yes (Death, Hospitalization)
  Sender: FDA-Public Use
  Company Number: US-SANOFI-SYNTHELABO-A01200800201

PATIENT
  Age: 45 Year
  Sex: Female

DRUGS (2)
  1. DILTIAZEM HCL [Suspect]
     Indication: INTENTIONAL OVERDOSE
     Route: 048
  2. ZOLPIDEM [Suspect]
     Indication: INTENTIONAL OVERDOSE
     Route: 048

REACTIONS (3)
  - ANOXIC ENCEPHALOPATHY [None]
  - CIRCULATORY COLLAPSE [None]
  - INTENTIONAL OVERDOSE [None]
